FAERS Safety Report 9952404 (Version 1)
Quarter: 2014Q1

REPORT INFORMATION
  Report Type: Report from Study
  Country: US (occurrence: US)
  Receive Date: 20140304
  Receipt Date: 20140304
  Transmission Date: 20141002
  Serious: No
  Sender: FDA-Public Use
  Company Number: US-ABBVIE-13P-163-1078249-00

PATIENT
  Age: 59 Year
  Sex: Male

DRUGS (3)
  1. HUMIRA [Suspect]
     Indication: CROHN^S DISEASE
     Dates: start: 20121129
  2. FERROUS SULFATE [Concomitant]
     Indication: ANAEMIA
  3. CALCIUM + VITAMIN D [Concomitant]
     Indication: MINERAL SUPPLEMENTATION

REACTIONS (1)
  - Pruritus [Recovered/Resolved]
